FAERS Safety Report 17880777 (Version 1)
Quarter: 2020Q2

REPORT INFORMATION
  Report Type: Spontaneous
  Country: US (occurrence: US)
  Receive Date: 20200610
  Receipt Date: 20200610
  Transmission Date: 20200714
  Serious: Yes (Hospitalization)
  Sender: FDA-Public Use
  Company Number: US-MYLANLABS-2020M1055719

PATIENT
  Age: 57 Year
  Sex: Male

DRUGS (2)
  1. FENTANYL. [Suspect]
     Active Substance: FENTANYL
     Indication: CANCER PAIN
     Dosage: 5 MILLIGRAM, ADMINISTERED EVERY 3 DAYS
     Route: 065
  2. HYDROMORPHONE [Suspect]
     Active Substance: HYDROMORPHONE
     Indication: CANCER PAIN
     Dosage: 4 MILLIGRAM ADMINISTERED EVERY 4 HOURS
     Route: 065

REACTIONS (2)
  - Drug use disorder [Recovered/Resolved]
  - Drug withdrawal syndrome [Recovered/Resolved]
